FAERS Safety Report 8999428 (Version 1)
Quarter: 2013Q1

REPORT INFORMATION
  Report Type: Report from Study
  Country: VE (occurrence: VE)
  Receive Date: 20130103
  Receipt Date: 20130103
  Transmission Date: 20140127
  Serious: Yes (Other)
  Sender: FDA-Public Use
  Company Number: VE-ABBOTT-12P-178-1028391-00

PATIENT
  Age: 63 Year
  Sex: Female
  Weight: 67 kg

DRUGS (4)
  1. HUMIRA [Suspect]
     Indication: PSORIATIC ARTHROPATHY
     Route: 058
     Dates: start: 201108, end: 201211
  2. CALCORT [Concomitant]
     Indication: PSORIATIC ARTHROPATHY
     Route: 048
  3. DEPOMEDROL [Concomitant]
     Indication: PSORIATIC ARTHROPATHY
     Route: 042
  4. AZULFIDINE [Concomitant]
     Indication: PSORIATIC ARTHROPATHY
     Route: 048

REACTIONS (2)
  - Antinuclear antibody positive [Recovering/Resolving]
  - Urticaria [Recovered/Resolved]
